FAERS Safety Report 12368814 (Version 2)
Quarter: 2016Q3

REPORT INFORMATION
  Report Type: Spontaneous
  Country: US (occurrence: US)
  Receive Date: 20160513
  Receipt Date: 20160927
  Transmission Date: 20161109
  Serious: Yes (Hospitalization)
  Sender: FDA-Public Use
  Company Number: US-B.I. PHARMACEUTICALS,INC./RIDGEFIELD-2016-BI-29909BI

PATIENT
  Sex: Male

DRUGS (32)
  1. FINASTERIDE. [Concomitant]
     Active Substance: FINASTERIDE
     Indication: PRODUCT USED FOR UNKNOWN INDICATION
     Dosage: 5 MG
     Route: 048
  2. SYNTHROID [Concomitant]
     Active Substance: LEVOTHYROXINE SODIUM
     Indication: PRODUCT USED FOR UNKNOWN INDICATION
     Dosage: 100 MCG
     Route: 048
  3. PROVENTIL [Concomitant]
     Active Substance: ALBUTEROL
     Dosage: DOSE PER APPLICATION: 2.5 MG/3ML (0.083%) ; 3 ML NEBULIZER
     Route: 055
  4. PRADAXA [Suspect]
     Active Substance: DABIGATRAN ETEXILATE MESYLATE
     Indication: ATRIAL FIBRILLATION
     Dosage: 300 MG
     Route: 048
     Dates: start: 20140404
  5. PRADAXA [Suspect]
     Active Substance: DABIGATRAN ETEXILATE MESYLATE
     Dosage: 600 MG
     Route: 048
  6. LISINOPRIL. [Concomitant]
     Active Substance: LISINOPRIL
     Indication: PRODUCT USED FOR UNKNOWN INDICATION
     Dosage: 20 MG
     Route: 048
  7. ALPHA LIPOIC ACID [Concomitant]
     Active Substance: .ALPHA.-LIPOIC ACID
     Indication: PRODUCT USED FOR UNKNOWN INDICATION
     Route: 048
  8. POMEGRANATE FRUIT EXTRACT [Concomitant]
     Dosage: 250 MG
     Route: 048
  9. SYNTHROID [Concomitant]
     Active Substance: LEVOTHYROXINE SODIUM
     Indication: PRODUCT USED FOR UNKNOWN INDICATION
     Dosage: 100 MCG
     Route: 048
  10. ALPHA LIPOIC ACID [Concomitant]
     Active Substance: .ALPHA.-LIPOIC ACID
     Indication: PRODUCT USED FOR UNKNOWN INDICATION
     Dosage: 50 MG
     Route: 048
  11. SPIRIVA [Concomitant]
     Active Substance: TIOTROPIUM BROMIDE MONOHYDRATE
     Indication: PRODUCT USED FOR UNKNOWN INDICATION
     Dosage: METER DOSE INHALER
     Route: 065
  12. ALBUTEROL SULFATE. [Concomitant]
     Active Substance: ALBUTEROL SULFATE
     Indication: PRODUCT USED FOR UNKNOWN INDICATION
     Dosage: DOSE PER APPLICATION: 2.5 MG/0.5ML NEBULE
     Route: 055
  13. CILOSTAZOL. [Concomitant]
     Active Substance: CILOSTAZOL
     Dosage: 400 MG
     Route: 048
  14. DONEPEZIL. [Concomitant]
     Active Substance: DONEPEZIL
     Indication: PRODUCT USED FOR UNKNOWN INDICATION
     Dosage: 10 MG
     Route: 048
  15. ATORVASTATIN [Concomitant]
     Active Substance: ATORVASTATIN
     Indication: PRODUCT USED FOR UNKNOWN INDICATION
     Dosage: 40 MG
     Route: 048
  16. POMEGRANATE FRUIT EXTRACT [Concomitant]
     Indication: PRODUCT USED FOR UNKNOWN INDICATION
     Dosage: 500 MG
     Route: 048
  17. LANSOPRAZOLE. [Concomitant]
     Active Substance: LANSOPRAZOLE
     Indication: PRODUCT USED FOR UNKNOWN INDICATION
     Dosage: 30 MG
     Route: 048
  18. VITAMIN E [Concomitant]
     Active Substance: .ALPHA.-TOCOPHEROL
     Indication: PRODUCT USED FOR UNKNOWN INDICATION
     Dosage: DOSE PER APPLICATION: 400 UNIT
     Route: 048
  19. TIOTROPIUM BROMIDE [Concomitant]
     Active Substance: TIOTROPIUM BROMIDE
     Indication: PRODUCT USED FOR UNKNOWN INDICATION
     Route: 055
  20. GABAPENTIN. [Concomitant]
     Active Substance: GABAPENTIN
     Indication: PRODUCT USED FOR UNKNOWN INDICATION
     Dosage: 300 MG
     Route: 048
  21. TOVIAZ [Concomitant]
     Active Substance: FESOTERODINE FUMARATE
     Indication: PRODUCT USED FOR UNKNOWN INDICATION
     Dosage: 8 MG
     Route: 048
  22. MULTIPLE VITAMINS [Concomitant]
     Active Substance: VITAMINS
     Indication: PRODUCT USED FOR UNKNOWN INDICATION
     Route: 048
  23. OSCAL 500+D [Concomitant]
     Dosage: STRENGTH: 500
     Route: 065
  24. CILOSTAZOL. [Concomitant]
     Active Substance: CILOSTAZOL
     Indication: PRODUCT USED FOR UNKNOWN INDICATION
     Dosage: 200 MG
     Route: 048
  25. PROVENTIL [Concomitant]
     Active Substance: ALBUTEROL
     Indication: PRODUCT USED FOR UNKNOWN INDICATION
     Route: 055
  26. METOPROLOL TARTRATE. [Concomitant]
     Active Substance: METOPROLOL TARTRATE
     Indication: PRODUCT USED FOR UNKNOWN INDICATION
     Dosage: 25 MG
     Route: 048
  27. GABAPENTIN. [Concomitant]
     Active Substance: GABAPENTIN
     Dosage: 300 MG
     Route: 048
  28. VITAMIN C [Concomitant]
     Active Substance: ASCORBIC ACID
     Indication: PRODUCT USED FOR UNKNOWN INDICATION
     Dosage: 500 MG
     Route: 048
  29. OSCAL 500+D [Concomitant]
     Indication: PRODUCT USED FOR UNKNOWN INDICATION
     Dosage: STRENGTH: 500
     Route: 065
  30. HUMULIN NOS [Concomitant]
     Active Substance: INSULIN HUMAN
     Indication: PRODUCT USED FOR UNKNOWN INDICATION
     Dosage: DOSE PER APPLICATION: 70/30 100 UNIT/ML (70-30) CRTG 10 UNITS MORNING, 20 UNITS EVENING
     Route: 058
  31. VITAMIN C [Concomitant]
     Active Substance: ASCORBIC ACID
     Dosage: 500 MG
     Route: 048
  32. ALPHA BETIC MULTIVITAMIN [Concomitant]
     Indication: PRODUCT USED FOR UNKNOWN INDICATION
     Route: 065

REACTIONS (2)
  - Anaemia [Unknown]
  - Lower gastrointestinal haemorrhage [Unknown]
